FAERS Safety Report 7583430-9 (Version None)
Quarter: 2011Q2

REPORT INFORMATION
  Report Type: 
  Country: None (occurrence: None)
  Receive Date: 20110630
  Receipt Date: 20110623
  Transmission Date: 20111010
  Serious: Yes (Other)
  Sender: FDA-Public Use
  Company Number: US-MYLANLABS-2011S1013043

PATIENT
  Sex: Male

DRUGS (1)
  1. AMNESTEEM [Suspect]
     Dates: start: 20110101, end: 20110607

REACTIONS (1)
  - SUICIDAL IDEATION [None]
